FAERS Safety Report 9475233 (Version 1)
Quarter: 2013Q3

REPORT INFORMATION
  Report Type: Spontaneous
  Country: US (occurrence: None)
  Receive Date: 20130822
  Receipt Date: 20130822
  Transmission Date: 20140515
  Serious: Yes (Disabling, Other)
  Sender: FDA-Public Use
  Company Number: None

PATIENT
  Age: 78 Year
  Sex: Female
  Weight: 86.18 kg

DRUGS (18)
  1. CILOSTAZOL [Suspect]
     Indication: MUSCLE DISORDER
     Route: 048
     Dates: start: 20130204, end: 20130619
  2. METFORMIN [Concomitant]
  3. ASPIRIN [Concomitant]
  4. MAGNESIUM [Concomitant]
  5. CLONIDINE [Concomitant]
  6. NEDFESOCAL [Concomitant]
  7. VIT D [Concomitant]
  8. LABETALOL [Concomitant]
  9. TRICOR [Concomitant]
  10. LASIX [Concomitant]
  11. POTASSIUM [Concomitant]
  12. INSULIN [Concomitant]
  13. ALPHA LIPAIR ACID [Concomitant]
  14. COQ10 [Concomitant]
  15. VITAMIN C+D [Concomitant]
  16. CHROMIUM [Concomitant]
  17. FENUGUSK [Concomitant]
  18. XL ALLERGY [Concomitant]

REACTIONS (5)
  - Blister [None]
  - Skin discolouration [None]
  - Pruritus [None]
  - Joint swelling [None]
  - Oedema peripheral [None]
